FAERS Safety Report 5015349-1 (Version None)
Quarter: 2006Q2

REPORT INFORMATION
  Report Type: 
  Country: None (occurrence: None)
  Receive Date: 20060530
  Receipt Date: 20060530
  Transmission Date: 20061013
  Serious: Yes (Other)
  Sender: FDA-Public Use
  Company Number: None

PATIENT
  Sex: Female
  Weight: 68.0396 kg

DRUGS (1)
  1. ZICAM OXYMETAZOLINE HYDROCHLORIDE .05 [Suspect]
     Indication: NASAL CONGESTION
     Dosage: SPRAY
     Dates: start: 20060527, end: 20060528

REACTIONS (4)
  - AGEUSIA [None]
  - ANOSMIA [None]
  - BURNING SENSATION [None]
  - DRUG EFFECT DECREASED [None]
